FAERS Safety Report 4673135-6 (Version None)
Quarter: 2005Q2

REPORT INFORMATION
  Report Type: 
  Country: None (occurrence: None)
  Receive Date: 20050525
  Receipt Date: 20050513
  Transmission Date: 20051028
  Serious: Yes (Other)
  Sender: FDA-Public Use
  Company Number: M-810431

PATIENT
  Age: 21 Year
  Sex: Male

DRUGS (2)
  1. HALDOL [Suspect]
     Indication: SEDATION
     Route: 030
  2. DIAZEPAM [Concomitant]

REACTIONS (1)
  - DYSTONIA [None]
